FAERS Safety Report 8986758 (Version 1)
Quarter: 2012Q4

REPORT INFORMATION
  Report Type: 
  Country: US (occurrence: US)
  Receive Date: 20121227
  Receipt Date: 20121227
  Transmission Date: 20130627
  Serious: No
  Sender: FDA-Public Use
  Company Number: US-009507513-1212USA010015

PATIENT
  Age: 70 Year
  Sex: Female

DRUGS (3)
  1. REMERON [Suspect]
     Indication: NAUSEA
     Dosage: 1/2 of a 15 mg tablet
     Route: 048
     Dates: start: 2012, end: 2012
  2. REMERON [Suspect]
     Indication: VOMITING
     Dosage: 15 mg
     Route: 048
     Dates: start: 2012, end: 2012
  3. ENTOCORT [Concomitant]

REACTIONS (6)
  - Balance disorder [Recovered/Resolved]
  - Poor quality sleep [Recovered/Resolved]
  - Adverse event [Recovered/Resolved]
  - Off label use [Unknown]
  - Wrong technique in drug usage process [Unknown]
  - Insomnia [Recovered/Resolved]
